FAERS Safety Report 10617890 (Version 1)
Quarter: 2014Q4

REPORT INFORMATION
  Report Type: Report from Study
  Country: CH (occurrence: CH)
  Receive Date: 20141201
  Receipt Date: 20141201
  Transmission Date: 20150529
  Serious: Yes (Death)
  Sender: FDA-Public Use
  Company Number: CH-SPECTRUM PHARMACEUTICALS, INC.-14-Z-CH-00370

PATIENT
  Age: 76 Year
  Sex: Male

DRUGS (3)
  1. ZEVALIN [Suspect]
     Active Substance: IBRITUMOMAB TIUXETAN
     Indication: LYMPHOMA
     Dosage: 0.4 MCI/KG, SINGLE
     Route: 042
     Dates: start: 20090731, end: 20090731
  2. RITUXIMAB [Suspect]
     Active Substance: RITUXIMAB
     Indication: LYMPHOMA
     Dosage: UNK UNK, SINGLE
     Route: 042
     Dates: start: 20090731, end: 20090731
  3. MELPHALAN [Suspect]
     Active Substance: MELPHALAN
     Indication: LYMPHOMA
     Dosage: UNK UNK, SINGLE
     Route: 042
     Dates: start: 20090817, end: 20090817

REACTIONS (8)
  - Respiratory failure [None]
  - Colitis ischaemic [None]
  - Septic shock [Fatal]
  - Aplasia [None]
  - Toxicity to various agents [None]
  - Multi-organ failure [None]
  - Renal failure [None]
  - Bronchopulmonary aspergillosis [None]

NARRATIVE: CASE EVENT DATE: 20090827
